FAERS Safety Report 24855454 (Version 1)
Quarter: 2025Q1

REPORT INFORMATION
  Report Type: Spontaneous
  Country: GB (occurrence: GB)
  Receive Date: 20250117
  Receipt Date: 20250117
  Transmission Date: 20250408
  Serious: Yes (Disabling, Other)
  Sender: TEVA
  Company Number: None

PATIENT
  Age: 59 Year
  Sex: Male
  Weight: 100 kg

DRUGS (2)
  1. LOSARTAN [Suspect]
     Active Substance: LOSARTAN
     Indication: Hypertension
     Route: 065
     Dates: start: 20241204, end: 20250109
  2. AMLODIPINE [Concomitant]
     Active Substance: AMLODIPINE BESYLATE
     Indication: Hypertension
     Dates: start: 20241204

REACTIONS (7)
  - Pain in extremity [Not Recovered/Not Resolved]
  - Peripheral swelling [Not Recovered/Not Resolved]
  - Ageusia [Not Recovered/Not Resolved]
  - Dysgeusia [Not Recovered/Not Resolved]
  - Joint swelling [Not Recovered/Not Resolved]
  - Paraesthesia [Not Recovered/Not Resolved]
  - Head lag [Not Recovered/Not Resolved]

NARRATIVE: CASE EVENT DATE: 20241214
